FAERS Safety Report 8031440-X (Version None)
Quarter: 2012Q1

REPORT INFORMATION
  Report Type: 
  Country: None (occurrence: None)
  Receive Date: 20120109
  Receipt Date: 20111229
  Transmission Date: 20120608
  Serious: Yes (Other)
  Sender: FDA-Public Use
  Company Number: CHPA2011US018836

PATIENT
  Sex: Female

DRUGS (2)
  1. EXCEDRIN (MIGRAINE) [Suspect]
     Indication: DYSMENORRHOEA
     Dosage: 2 DF, ONCE/SINGLE
     Route: 048
     Dates: start: 20000101, end: 20000101
  2. NUPRIN [Concomitant]

REACTIONS (1)
  - MENORRHAGIA [None]
